FAERS Safety Report 9783789 (Version 2)
Quarter: 2014Q1

REPORT INFORMATION
  Report Type: Spontaneous
  Country: US (occurrence: US)
  Receive Date: 20131226
  Receipt Date: 20140110
  Transmission Date: 20141002
  Serious: Yes (Other)
  Sender: FDA-Public Use
  Company Number: US-PERRIGO-13US012949

PATIENT
  Age: 35 Year
  Sex: Female
  Weight: 73.47 kg

DRUGS (1)
  1. ACETAMINOPHEN 500MG 484 [Suspect]
     Indication: PAIN
     Dosage: 500 MG, SINGLE
     Route: 048
     Dates: start: 20131217, end: 20131217

REACTIONS (12)
  - Hallucination [Recovered/Resolved]
  - Aphasia [Recovered/Resolved]
  - Headache [Not Recovered/Not Resolved]
  - Nausea [Not Recovered/Not Resolved]
  - Heart rate increased [Recovered/Resolved]
  - Vision blurred [Not Recovered/Not Resolved]
  - Nightmare [Recovered/Resolved]
  - Hyperhidrosis [Recovered/Resolved]
  - Somnolence [Recovered/Resolved]
  - Underdose [Recovered/Resolved]
  - Feeling abnormal [Not Recovered/Not Resolved]
  - Movement disorder [Recovered/Resolved]
